FAERS Safety Report 8140297-8 (Version None)
Quarter: 2012Q1

REPORT INFORMATION
  Report Type: 
  Country: None (occurrence: None)
  Receive Date: 20120216
  Receipt Date: 20120213
  Transmission Date: 20120608
  Serious: No
  Sender: FDA-Public Use
  Company Number: US-PFIZER INC-2012039821

PATIENT
  Sex: Female
  Weight: 68 kg

DRUGS (4)
  1. CHANTIX [Suspect]
     Dosage: 0.5 MG, 2X/DAY
     Route: 048
     Dates: start: 20120101, end: 20120201
  2. BUSPAR [Concomitant]
     Indication: INSOMNIA
  3. CHANTIX [Suspect]
     Indication: SMOKING CESSATION THERAPY
     Dosage: 0.5MG DAILY
     Route: 048
     Dates: start: 20120129, end: 20120101
  4. BUSPAR [Concomitant]
     Indication: ANXIETY
     Dosage: 7.5 MG, DAILY
     Route: 048

REACTIONS (1)
  - AGITATION [None]
